FAERS Safety Report 9982406 (Version 1)
Quarter: 2014Q1

REPORT INFORMATION
  Report Type: Spontaneous
  Country: US (occurrence: US)
  Receive Date: 20140307
  Receipt Date: 20140307
  Transmission Date: 20141002
  Serious: No
  Sender: FDA-Public Use
  Company Number: US-ABBVIE-13P-163-1179283-00

PATIENT
  Age: 64 Year
  Sex: Female

DRUGS (6)
  1. HUMIRA [Suspect]
     Indication: RHEUMATOID ARTHRITIS
     Dates: start: 201311
  2. HUMIRA [Suspect]
     Indication: PSORIATIC ARTHROPATHY
  3. HUMIRA [Suspect]
     Indication: PSORIASIS
  4. ACZONE [Concomitant]
     Indication: ACNE
  5. AURSTAT [Concomitant]
     Indication: PRODUCT USED FOR UNKNOWN INDICATION
  6. TRETINOIN [Concomitant]
     Indication: ACNE

REACTIONS (2)
  - Rash pruritic [Unknown]
  - Rash [Unknown]
